FAERS Safety Report 8740514 (Version 6)
Quarter: 2013Q1

REPORT INFORMATION
  Report Type: Spontaneous
  Country: US (occurrence: US)
  Receive Date: 20120823
  Receipt Date: 20130319
  Transmission Date: 20140127
  Serious: Yes (Other)
  Sender: FDA-Public Use
  Company Number: US-009507513-1208USA007288

PATIENT
  Sex: Female
  Weight: 78.91 kg

DRUGS (1)
  1. IMPLANON [Suspect]
     Indication: CONTRACEPTION
     Dosage: 68 MG, 3 YEARS IMPLANT
     Route: 059
     Dates: start: 20120119, end: 20121029

REACTIONS (7)
  - Muscle spasms [Recovered/Resolved]
  - Hormone level abnormal [Recovered/Resolved]
  - Device breakage [Unknown]
  - Hypomenorrhoea [Unknown]
  - Headache [Recovered/Resolved]
  - Menstruation delayed [Unknown]
  - Weight increased [Unknown]
